FAERS Safety Report 8131969-X (Version None)
Quarter: 2012Q1

REPORT INFORMATION
  Report Type: 
  Country: None (occurrence: None)
  Receive Date: 20120207
  Receipt Date: 20120124
  Transmission Date: 20120608
  Serious: Yes (Hospitalization)
  Sender: FDA-Public Use
  Company Number: CR12-0008

PATIENT
  Sex: Male

DRUGS (1)
  1. PRIMATENE MIST [Suspect]
     Indication: ASTHMA
     Dosage: SEVERAL INHALATIONS
     Dates: start: 20111120

REACTIONS (4)
  - NO THERAPEUTIC RESPONSE [None]
  - ASTHMA [None]
  - PNEUMONIA PRIMARY ATYPICAL [None]
  - ATRIAL FIBRILLATION [None]
